FAERS Safety Report 20009178 (Version 1)
Quarter: 2021Q4

REPORT INFORMATION
  Report Type: Spontaneous
  Country: US (occurrence: US)
  Receive Date: 20211029
  Receipt Date: 20211029
  Transmission Date: 20220303
  Serious: Yes (Hospitalization, Other)
  Sender: FDA-Public Use
  Company Number: US-MLMSERVICE-20211014-3166965-1

PATIENT

DRUGS (1)
  1. GEMCITABINE [Suspect]
     Active Substance: GEMCITABINE
     Indication: Pancreatic carcinoma metastatic
     Dosage: UNK
     Route: 065

REACTIONS (4)
  - Pulmonary toxicity [Recovering/Resolving]
  - Respiratory acidosis [Recovering/Resolving]
  - Pleural effusion [Recovering/Resolving]
  - Pneumonitis [Recovering/Resolving]
